FAERS Safety Report 11073746 (Version 1)
Quarter: 2015Q2

REPORT INFORMATION
  Report Type: Report from Study
  Country: PL (occurrence: PL)
  Receive Date: 20150428
  Receipt Date: 20150428
  Transmission Date: 20150821
  Serious: Yes (Death, Hospitalization, Other)
  Sender: FDA-Public Use
  Company Number: PHHY2015PL049224

PATIENT
  Age: 45 Year
  Sex: Female

DRUGS (1)
  1. SANDOSTATIN LAR DEPOT [Suspect]
     Active Substance: OCTREOTIDE ACETATE
     Indication: PANCREATIC NEUROENDOCRINE TUMOUR
     Route: 065
     Dates: start: 20051210

REACTIONS (23)
  - Pseudopolyp [Unknown]
  - Abdominal pain [Unknown]
  - General physical health deterioration [Unknown]
  - Dysplasia [Unknown]
  - Carcinoid heart disease [Fatal]
  - Diarrhoea [Unknown]
  - Gastritis haemorrhagic [Unknown]
  - Blood chromogranin A increased [Unknown]
  - Weight decreased [Unknown]
  - Steatorrhoea [Unknown]
  - Colitis ulcerative [Unknown]
  - Abdominal pain upper [Unknown]
  - Myocardial infarction [Unknown]
  - Decreased appetite [Unknown]
  - Fluid retention [Unknown]
  - Oesophagitis [Unknown]
  - Gastrointestinal inflammation [Unknown]
  - Circulatory collapse [Fatal]
  - Gastrooesophageal reflux disease [Unknown]
  - Oedema peripheral [Unknown]
  - Hiatus hernia [Unknown]
  - Hypoalbuminaemia [Unknown]
  - Vomiting [Unknown]

NARRATIVE: CASE EVENT DATE: 20090810
